FAERS Safety Report 4703397-8 (Version None)
Quarter: 2005Q2

REPORT INFORMATION
  Report Type: 
  Country: None (occurrence: None)
  Receive Date: 20050624
  Receipt Date: 20050323
  Transmission Date: 20051028
  Serious: No
  Sender: FDA-Public Use
  Company Number: 2005BI003617

PATIENT
  Sex: Female

DRUGS (7)
  1. NATALIZUMAB [Suspect]
     Indication: MULTIPLE SCLEROSIS
     Dosage: IV
     Route: 042
     Dates: start: 20050101, end: 20050201
  2. BACLOFEN [Concomitant]
  3. ZANAFLEX [Concomitant]
  4. REQUIP [Concomitant]
  5. PROVIGIL [Concomitant]
  6. ANTIVERT [Concomitant]
  7. AMBIEN [Concomitant]

REACTIONS (1)
  - MENORRHAGIA [None]
